FAERS Safety Report 5038672-3 (Version None)
Quarter: 2006Q2

REPORT INFORMATION
  Report Type: 
  Country: None (occurrence: None)
  Receive Date: 20060627
  Receipt Date: 20060627
  Transmission Date: 20061013
  Serious: Yes (Hospitalization)
  Sender: FDA-Public Use
  Company Number: None

PATIENT
  Sex: Male
  Weight: 71.2 kg

DRUGS (1)
  1. DOXIL [Suspect]
     Dosage: 56 MG

REACTIONS (2)
  - FEBRILE NEUTROPENIA [None]
  - HYPOTENSION [None]
